FAERS Safety Report 7683131-2 (Version None)
Quarter: 2011Q3

REPORT INFORMATION
  Report Type: 
  Country: None (occurrence: None)
  Receive Date: 20110815
  Receipt Date: 20110811
  Transmission Date: 20111222
  Serious: Yes (Hospitalization, Other)
  Sender: FDA-Public Use
  Company Number: US-PFIZER INC-2011185469

PATIENT
  Sex: Male
  Weight: 120 kg

DRUGS (6)
  1. MEPROBAMATE [Concomitant]
     Dosage: UNK
  2. AMLODIPINE [Concomitant]
     Dosage: 5 MG, UNK
  3. DILANTIN [Suspect]
     Indication: CONVULSION
     Dosage: 400 MG, 1X/DAY
     Route: 048
     Dates: start: 19550101, end: 19760101
  4. DILANTIN [Suspect]
     Dosage: 400 MG, 1X/DAY
     Route: 048
     Dates: start: 19760101
  5. WARFARIN [Concomitant]
     Dosage: UNK
  6. ACETYLSALICYLIC ACID [Concomitant]
     Dosage: UNK

REACTIONS (5)
  - MALAISE [None]
  - BLOOD CHOLESTEROL INCREASED [None]
  - CARDIAC FIBRILLATION [None]
  - OEDEMA PERIPHERAL [None]
  - NORMAL PRESSURE HYDROCEPHALUS [None]
